FAERS Safety Report 5138741-3 (Version None)
Quarter: 2006Q4

REPORT INFORMATION
  Report Type: 
  Country: None (occurrence: None)
  Receive Date: 20061026
  Receipt Date: 20061026
  Transmission Date: 20070319
  Serious: Yes (Life-Threatening)
  Sender: FDA-Public Use
  Company Number: None

PATIENT
  Age: 56 Year
  Sex: Female
  Weight: 58 kg

DRUGS (3)
  1. ISONIAZID [Suspect]
     Indication: TUBERCULOSIS
     Dosage: 300 MG  DAILY  PO
     Route: 048
  2. RIFAMPIN [Suspect]
     Indication: TUBERCULOSIS
     Dosage: 300 MG   BID   PO
     Route: 048
  3. PYRAZINAMIDE [Suspect]
     Indication: TUBERCULOSIS
     Dosage: BID  PO
     Route: 048

REACTIONS (5)
  - ASPARTATE AMINOTRANSFERASE INCREASED [None]
  - BLOOD BILIRUBIN INCREASED [None]
  - HEPATOTOXICITY [None]
  - JAUNDICE [None]
  - LETHARGY [None]
